FAERS Safety Report 8200697-4 (Version None)
Quarter: 2012Q1

REPORT INFORMATION
  Report Type: 
  Country: None (occurrence: None)
  Receive Date: 20120312
  Receipt Date: 20120305
  Transmission Date: 20120608
  Serious: Yes (Death, Other)
  Sender: FDA-Public Use
  Company Number: US-ASTELLAS-2011US008253

PATIENT
  Sex: Female
  Weight: 73 kg

DRUGS (2)
  1. PROGRAF [Suspect]
     Dosage: 5 MG, UID/QD
     Route: 048
     Dates: start: 20000816, end: 20110921
  2. PROGRAF [Suspect]
     Indication: RENAL TRANSPLANT
     Dosage: 2 MG AM, 1 MG PM
     Route: 048
     Dates: start: 19990225

REACTIONS (2)
  - DEATH [None]
  - RENAL TRANSPLANT [None]
